APPROVED DRUG PRODUCT: OXCARBAZEPINE
Active Ingredient: OXCARBAZEPINE
Strength: 600MG
Dosage Form/Route: TABLET;ORAL
Application: A077794 | Product #003 | TE Code: AB
Applicant: SUN PHARMACEUTICAL INDUSTRIES LTD
Approved: Oct 9, 2007 | RLD: No | RS: No | Type: RX